FAERS Safety Report 7362246-2 (Version None)
Quarter: 2011Q1

REPORT INFORMATION
  Report Type: 
  Country: None (occurrence: None)
  Receive Date: 20110318
  Receipt Date: 20110221
  Transmission Date: 20110831
  Serious: No
  Sender: FDA-Public Use
  Company Number: US-B.I. PHARMACEUTICALS,INC./RIDGEFIELD-2011-BP-06090BP

PATIENT
  Sex: Female

DRUGS (15)
  1. QUININE SULFATE [Concomitant]
     Indication: MUSCLE SPASMS
     Route: 048
  2. PRADAXA [Suspect]
     Indication: ATRIAL FIBRILLATION
     Dosage: 300 MG
     Route: 048
     Dates: start: 20110201, end: 20110204
  3. PRADAXA [Suspect]
     Dosage: 300 MG
     Route: 048
     Dates: start: 20110220
  4. METOPROLOL SUCCINATE [Suspect]
     Dosage: 50 MG
     Route: 048
     Dates: start: 20110217
  5. CENTRUM SILVER MULTIVITAMIN [Concomitant]
     Indication: ROUTINE HEALTH MAINTENANCE
     Route: 048
  6. OSTEO BIFLEX [Concomitant]
     Indication: ARTHRALGIA
     Route: 048
  7. FOLIC ACID [Concomitant]
     Dosage: 400 MG
     Route: 048
  8. ASCORBIC ACID [Concomitant]
     Indication: ROUTINE HEALTH MAINTENANCE
     Route: 048
  9. LEVOTHYROXINE SODIUM [Concomitant]
     Indication: HYPOTHYROIDISM
     Dosage: 50 MCG
     Route: 048
  10. TRAMADOL HCL [Concomitant]
     Indication: BACK PAIN
     Route: 048
  11. METOPROLOL SUCCINATE [Suspect]
     Indication: ATRIAL FIBRILLATION
     Dosage: 50 MG
     Route: 048
     Dates: start: 20110201, end: 20110203
  12. EXTRA STRENGTH TYLENOL ARTHRITIS [Concomitant]
     Indication: BACK PAIN
     Route: 048
  13. PRILOSEC [Concomitant]
     Indication: IRRITABLE BOWEL SYNDROME
  14. OSTEO BIFLEX [Concomitant]
  15. PRILOSEC [Concomitant]
     Indication: DIVERTICULITIS
     Dosage: 20.6 MG
     Route: 048

REACTIONS (3)
  - FATIGUE [None]
  - ABDOMINAL PAIN UPPER [None]
  - NAUSEA [None]
